FAERS Safety Report 4480721-5 (Version None)
Quarter: 2004Q4

REPORT INFORMATION
  Report Type: 
  Country: None (occurrence: None)
  Receive Date: 20041019
  Receipt Date: 20041006
  Transmission Date: 20050328
  Serious: Yes (Death)
  Sender: FDA-Public Use
  Company Number: 2004076499

PATIENT
  Age: 37 Year
  Sex: Male

DRUGS (3)
  1. ZOLOFT [Suspect]
     Indication: ILL-DEFINED DISORDER
  2. ANTIHISTAMINES (ANTIHISTAMINES) [Suspect]
     Indication: HYPERSENSITIVITY
  3. ACETAMINOPHEN [Suspect]
     Indication: ILL-DEFINED DISORDER

REACTIONS (1)
  - ACCIDENT [None]
